FAERS Safety Report 21762685 (Version 1)
Quarter: 2022Q4

REPORT INFORMATION
  Report Type: Spontaneous
  Country: US (occurrence: US)
  Receive Date: 20221221
  Receipt Date: 20221221
  Transmission Date: 20230113
  Serious: Yes (Hospitalization)
  Sender: FDA-Public Use
  Company Number: US-MYLANLABS-2022M1140738

PATIENT
  Sex: Male

DRUGS (6)
  1. PREDNISONE [Suspect]
     Active Substance: PREDNISONE
     Indication: Gout
     Dosage: UNK (HIGH DOSE)
     Route: 065
     Dates: start: 2012
  2. PREDNISONE [Suspect]
     Active Substance: PREDNISONE
     Dosage: UNK (WAS INCREASED)
     Route: 065
  3. METHOTREXATE [Suspect]
     Active Substance: METHOTREXATE
     Indication: Drug therapy
     Dosage: UNK
     Route: 065
  4. ANAKINRA [Suspect]
     Active Substance: ANAKINRA
     Indication: Drug therapy
     Dosage: UNK
     Route: 065
  5. RITUXIMAB [Suspect]
     Active Substance: RITUXIMAB
     Indication: Polyarteritis nodosa
     Dosage: UNK
     Route: 065
  6. CYCLOPHOSPHAMIDE [Suspect]
     Active Substance: CYCLOPHOSPHAMIDE
     Indication: Polyarteritis nodosa
     Dosage: UNK
     Route: 065

REACTIONS (2)
  - Drug ineffective [Unknown]
  - Depression [Unknown]
